FAERS Safety Report 7539297-8 (Version None)
Quarter: 2011Q2

REPORT INFORMATION
  Report Type: 
  Country: None (occurrence: None)
  Receive Date: 20110610
  Receipt Date: 20110526
  Transmission Date: 20111010
  Serious: No
  Sender: FDA-Public Use
  Company Number: US-B.I. PHARMACEUTICALS,INC./RIDGEFIELD-2011-BP-14087BP

PATIENT
  Age: 63 Year
  Sex: Male

DRUGS (4)
  1. PRADAXA [Suspect]
     Indication: ATRIAL FIBRILLATION
     Dosage: 300 MG
     Route: 048
     Dates: start: 20110101
  2. HYDROCHLOROTHIAZIDE [Concomitant]
  3. CRESTOR [Concomitant]
  4. ALTACE [Concomitant]

REACTIONS (1)
  - RED BLOOD CELL COUNT DECREASED [None]
